FAERS Safety Report 18228803 (Version 1)
Quarter: 2020Q3

REPORT INFORMATION
  Report Type: Report from Study
  Country: US (occurrence: US)
  Receive Date: 20200903
  Receipt Date: 20200903
  Transmission Date: 20201103
  Serious: Yes (Death, Hospitalization, Other)
  Sender: FDA-Public Use
  Company Number: US-GILEAD-2020-0492976

PATIENT
  Age: 43 Year
  Sex: Female

DRUGS (3)
  1. AZTREONAM LYSINE [Suspect]
     Active Substance: AZTREONAM LYSINE
     Indication: CYSTIC FIBROSIS
     Dosage: 1 DOSAGE FORM, TID 28 DAYS ON 28 DAYS OFF
     Route: 055
  2. CELEXA [CELECOXIB] [Concomitant]
     Active Substance: CELECOXIB
  3. OXYGEN. [Concomitant]
     Active Substance: OXYGEN

REACTIONS (2)
  - Dyspnoea [Not Recovered/Not Resolved]
  - Death [Fatal]

NARRATIVE: CASE EVENT DATE: 20200808
